FAERS Safety Report 16698291 (Version 2)
Quarter: 2020Q2

REPORT INFORMATION
  Report Type: Spontaneous
  Country: IT (occurrence: IT)
  Receive Date: 20190813
  Receipt Date: 20200525
  Transmission Date: 20200713
  Serious: Yes (Other)
  Sender: FDA-Public Use
  Company Number: IT-009507513-1908ITA004301

PATIENT
  Age: 66 Year
  Sex: Male

DRUGS (2)
  1. LENVATINIB MESYLATE [Concomitant]
     Active Substance: LENVATINIB MESYLATE
     Indication: RENAL CANCER METASTATIC
     Dosage: UNK
  2. PEMBROLIZUMAB. [Suspect]
     Active Substance: PEMBROLIZUMAB
     Indication: RENAL CANCER METASTATIC
     Dosage: UNK

REACTIONS (2)
  - Orbital myositis [Recovering/Resolving]
  - Immune-mediated myositis [Recovering/Resolving]
